FAERS Safety Report 5448039-1 (Version None)
Quarter: 2007Q3

REPORT INFORMATION
  Report Type: 
  Country: None (occurrence: None)
  Receive Date: 20070910
  Receipt Date: 20070830
  Transmission Date: 20080115
  Serious: Yes (Hospitalization)
  Sender: FDA-Public Use
  Company Number: US-GENENTECH-246922

PATIENT
  Sex: Female

DRUGS (6)
  1. BEVACIZUMAB [Suspect]
     Indication: BREAST CANCER
     Dosage: 680 MG, UNK
     Route: 042
     Dates: start: 20070122, end: 20070514
  2. ADRIAMYCIN PFS [Suspect]
     Indication: BREAST CANCER
     Dosage: 104 MG, UNK
     Route: 042
     Dates: start: 20070122, end: 20070514
  3. CYTOXAN [Suspect]
     Indication: DRUG USE FOR UNKNOWN INDICATION
     Dosage: 1040 MG, UNK
     Route: 042
     Dates: start: 20070122
  4. NEULASTA [Suspect]
     Indication: BREAST CANCER
     Dosage: 6 MG, UNK
     Route: 042
     Dates: start: 20070121
  5. TAXOL [Suspect]
     Indication: BREAST CANCER
     Dosage: 306 MG, UNK
     Route: 042
     Dates: start: 20070319
  6. DARVOCET [Concomitant]
     Indication: DRUG USE FOR UNKNOWN INDICATION
     Dates: start: 20070129

REACTIONS (1)
  - CARDIAC FAILURE [None]
